FAERS Safety Report 13129347 (Version 2)
Quarter: 2017Q1

REPORT INFORMATION
  Report Type: Report from Study
  Country: None (occurrence: US)
  Receive Date: 20170119
  Receipt Date: 20170123
  Transmission Date: 20170428
  Serious: Yes (Hospitalization)
  Sender: FDA-Public Use
  Company Number: US-ABBVIE-12P-163-0990584-00

PATIENT
  Sex: Female
  Weight: 80.36 kg

DRUGS (12)
  1. AMLODIPINE [Concomitant]
     Active Substance: AMLODIPINE BESYLATE
     Indication: HYPERTENSION
  2. ESTRADIOL. [Concomitant]
     Active Substance: ESTRADIOL
     Indication: HORMONE REPLACEMENT THERAPY
  3. OMEPRAZOLE. [Concomitant]
     Active Substance: OMEPRAZOLE
     Indication: GASTROOESOPHAGEAL REFLUX DISEASE
  4. METOPROLOL. [Concomitant]
     Active Substance: METOPROLOL
     Indication: HYPERTENSION
  5. HYDROXYCHLORAQUINE [Concomitant]
     Active Substance: HYDROXYCHLOROQUINE
     Indication: RHEUMATOID ARTHRITIS
  6. DETROL LA [Concomitant]
     Active Substance: TOLTERODINE TARTRATE
     Indication: URINARY INCONTINENCE
  7. SPIRONOLACTONE. [Concomitant]
     Active Substance: SPIRONOLACTONE
     Indication: HYPERTENSION
  8. ZOPIDEM [Concomitant]
     Active Substance: ZOLPIDEM\ZOLPIDEM TARTRATE
     Indication: ANXIETY
  9. CELEBREX [Suspect]
     Active Substance: CELECOXIB
     Indication: RHEUMATOID ARTHRITIS
     Route: 065
     Dates: end: 201111
  10. HUMIRA [Suspect]
     Active Substance: ADALIMUMAB
     Indication: ANKYLOSING SPONDYLITIS
  11. HUMIRA [Suspect]
     Active Substance: ADALIMUMAB
     Indication: RHEUMATOID ARTHRITIS
     Route: 058
     Dates: start: 2008
  12. CELEBREX [Suspect]
     Active Substance: CELECOXIB
     Indication: ANKYLOSING SPONDYLITIS
     Route: 065
     Dates: start: 201208, end: 201209

REACTIONS (13)
  - Peripheral swelling [Recovering/Resolving]
  - Joint swelling [Recovering/Resolving]
  - Renal disorder [Unknown]
  - Weight decreased [Recovering/Resolving]
  - Dyspepsia [Recovered/Resolved]
  - Protein urine present [Unknown]
  - Impaired gastric emptying [Recovered/Resolved]
  - Dyspnoea [Recovered/Resolved]
  - Injection site bruising [Recovering/Resolving]
  - Arthralgia [Not Recovered/Not Resolved]
  - Laceration [Recovered/Resolved]
  - Diarrhoea [Not Recovered/Not Resolved]
  - Wheezing [Recovered/Resolved]

NARRATIVE: CASE EVENT DATE: 2008
